FAERS Safety Report 9122394 (Version 1)
Quarter: 2013Q1

REPORT INFORMATION
  Report Type: Report from Study
  Country: DE (occurrence: DE)
  Receive Date: 20130227
  Receipt Date: 20130227
  Transmission Date: 20140127
  Serious: Yes (Death, Hospitalization)
  Sender: FDA-Public Use
  Company Number: PHHO2011DE06099

PATIENT
  Age: 61 Year
  Sex: Female
  Weight: 37 kg

DRUGS (2)
  1. EVEROLIMUS [Suspect]
     Indication: PANCREATIC CARCINOMA
     Dosage: 5 MG, QD
     Route: 048
     Dates: start: 20100624
  2. GEMCITABINE [Concomitant]
     Indication: PANCREATIC CARCINOMA
     Dosage: 500 MG/M2, UNK
     Dates: start: 20100624

REACTIONS (2)
  - Concomitant disease progression [Fatal]
  - General physical health deterioration [Fatal]
